FAERS Safety Report 18678639 (Version 2)
Quarter: 2021Q1

REPORT INFORMATION
  Report Type: Report from Study
  Country: US (occurrence: US)
  Receive Date: 20201230
  Receipt Date: 20210110
  Transmission Date: 20210419
  Serious: Yes (Other)
  Sender: FDA-Public Use
  Company Number: US-JNJFOC-20201244666

PATIENT

DRUGS (2)
  1. REMICADE [Suspect]
     Active Substance: INFLIXIMAB
     Indication: COLITIS ULCERATIVE
     Route: 042
  2. REMICADE [Suspect]
     Active Substance: INFLIXIMAB
     Indication: CROHN^S DISEASE

REACTIONS (5)
  - Neoplasm malignant [Unknown]
  - Therapeutic product effect decreased [Unknown]
  - Infusion related reaction [Unknown]
  - Dermatitis psoriasiform [Unknown]
  - Human antichimeric antibody positive [Unknown]
